FAERS Safety Report 6081277-6 (Version None)
Quarter: 2009Q1

REPORT INFORMATION
  Report Type: 
  Country: None (occurrence: None)
  Receive Date: 20090213
  Receipt Date: 20090202
  Transmission Date: 20090719
  Serious: Yes (Hospitalization)
  Sender: FDA-Public Use
  Company Number: KV200900152

PATIENT
  Age: 75 Year
  Sex: Female

DRUGS (6)
  1. ISOSORBIDE MONONITRATE [Suspect]
     Indication: CORONARY ARTERY OCCLUSION
     Dosage: QD, ORAL
     Route: 048
     Dates: start: 20080101
  2. DIOVAN [Concomitant]
  3. LIPITOR [Concomitant]
  4. .. [Concomitant]
  5. ASPIRIN(ACETYLSALIC ACID) [Concomitant]
  6. HORMONE REPLACEMENT (NOS) [Concomitant]

REACTIONS (3)
  - CHEST PAIN [None]
  - HEADACHE [None]
  - PRODUCT QUALITY ISSUE [None]
